FAERS Safety Report 22177797 (Version 1)
Quarter: 2023Q2

REPORT INFORMATION
  Report Type: Spontaneous
  Country: US (occurrence: US)
  Receive Date: 20230405
  Receipt Date: 20230405
  Transmission Date: 20230722
  Serious: Yes (Hospitalization)
  Sender: FDA-Public Use
  Company Number: US-APIL-2310498US

PATIENT
  Sex: Female
  Weight: 90.718 kg

DRUGS (3)
  1. INFED [Suspect]
     Active Substance: IRON DEXTRAN
     Indication: Iron deficiency anaemia
     Dosage: 500 MG, SINGLE
     Route: 042
     Dates: start: 20230103, end: 20230103
  2. SYNTHROID [Concomitant]
     Active Substance: LEVOTHYROXINE SODIUM
     Indication: Thyroid disorder
     Dosage: UNK
  3. IRON [Concomitant]
     Active Substance: IRON
     Dosage: 100 MG

REACTIONS (2)
  - Uterine contractions during pregnancy [Unknown]
  - Maternal exposure during pregnancy [Unknown]

NARRATIVE: CASE EVENT DATE: 20230110
